FAERS Safety Report 19687311 (Version 2)
Quarter: 2022Q2

REPORT INFORMATION
  Report Type: Spontaneous
  Country: US (occurrence: US)
  Receive Date: 20210811
  Receipt Date: 20220411
  Transmission Date: 20220721
  Serious: No
  Sender: FDA-Public Use
  Company Number: US-PFIZER INC-2021458600

PATIENT
  Age: 48 Year
  Sex: Female
  Weight: 58.957 kg

DRUGS (14)
  1. IBRANCE [Suspect]
     Active Substance: PALBOCICLIB
     Indication: Breast cancer female
     Dosage: 125 MG, 1X/DAY
     Route: 048
     Dates: start: 20210409
  2. IBRANCE [Suspect]
     Active Substance: PALBOCICLIB
     Indication: Breast cancer
     Dosage: 125 MG, CYCLIC (DAILY 21 DAYS, THEN 7DAYS OFF)
     Route: 048
     Dates: start: 20210409
  3. IBRANCE [Suspect]
     Active Substance: PALBOCICLIB
     Dosage: 100 MG, CYCLIC (DAILY DAYS 1-21, 7 DAYS OFF)
     Route: 048
  4. IBUPROFEN [Concomitant]
     Active Substance: IBUPROFEN
  5. FULVESTRANT [Concomitant]
     Active Substance: FULVESTRANT
  6. LORAZEPAM [Concomitant]
     Active Substance: LORAZEPAM
  7. THE MAGIC BULLET [Concomitant]
     Active Substance: BISACODYL
  8. MORPHINE SULFATE [Concomitant]
     Active Substance: MORPHINE SULFATE
  9. TYLENOL [Concomitant]
     Active Substance: ACETAMINOPHEN
  10. VITAMIN D3 [Concomitant]
     Active Substance: CHOLECALCIFEROL
  11. CLINDAMYCIN HYDROCHLORIDE [Concomitant]
     Active Substance: CLINDAMYCIN HYDROCHLORIDE
  12. PROCHLORPERAZINE [Concomitant]
     Active Substance: PROCHLORPERAZINE
  13. MODERNA COVID-19 VACCINE [Concomitant]
     Active Substance: ELASOMERAN
  14. LEVOTHYROXINE SODIUM [Concomitant]
     Active Substance: LEVOTHYROXINE SODIUM

REACTIONS (9)
  - Injection site pain [Unknown]
  - Skin reaction [Unknown]
  - Fatigue [Unknown]
  - White blood cell count decreased [Not Recovered/Not Resolved]
  - Hypoaesthesia [Not Recovered/Not Resolved]
  - Spinal pain [Not Recovered/Not Resolved]
  - Abdominal discomfort [Not Recovered/Not Resolved]
  - Jaw disorder [Not Recovered/Not Resolved]
  - Oral pain [Not Recovered/Not Resolved]
